FAERS Safety Report 11790992 (Version 1)
Quarter: 2015Q4

REPORT INFORMATION
  Report Type: Spontaneous
  Country: US (occurrence: US)
  Receive Date: 20151201
  Receipt Date: 20151201
  Transmission Date: 20160305
  Serious: Yes (Other)
  Sender: FDA-Public Use
  Company Number: US-TEVA-612820USA

PATIENT
  Age: 24 Year
  Sex: Female

DRUGS (2)
  1. VECURONIUM BROMIDE. [Concomitant]
     Active Substance: VECURONIUM BROMIDE
     Route: 065
  2. PROPOFOL. [Suspect]
     Active Substance: PROPOFOL
     Dosage: 80MG/KG
     Route: 050

REACTIONS (3)
  - Acute respiratory distress syndrome [Recovered/Resolved]
  - Propofol infusion syndrome [Recovered/Resolved]
  - Abdominal compartment syndrome [Recovered/Resolved]
